APPROVED DRUG PRODUCT: CIMETIDINE
Active Ingredient: CIMETIDINE
Strength: 200MG
Dosage Form/Route: TABLET;ORAL
Application: A074961 | Product #001
Applicant: CONTRACT PHARMACAL CORP
Approved: Jun 19, 1998 | RLD: No | RS: No | Type: DISCN